FAERS Safety Report 6278799-1 (Version None)
Quarter: 2009Q3

REPORT INFORMATION
  Report Type: 
  Country: None (occurrence: None)
  Receive Date: 20090723
  Receipt Date: 20090717
  Transmission Date: 20100115
  Serious: Yes (Other)
  Sender: FDA-Public Use
  Company Number: NL-BIOGENIDEC-2009BI018189

PATIENT
  Age: 50 Year
  Sex: Female

DRUGS (1)
  1. TYSABRI [Suspect]
     Indication: MULTIPLE SCLEROSIS
     Route: 042
     Dates: start: 20080730, end: 20090603

REACTIONS (3)
  - AMNESIA [None]
  - APHASIA [None]
  - COGNITIVE DISORDER [None]
